FAERS Safety Report 4321089-4 (Version None)
Quarter: 2004Q1

REPORT INFORMATION
  Report Type: 
  Country: None (occurrence: None)
  Receive Date: 20040322
  Receipt Date: 20040312
  Transmission Date: 20041129
  Serious: Yes (Other)
  Sender: FDA-Public Use
  Company Number: PHEH2004US02972

PATIENT
  Sex: Male

DRUGS (1)
  1. ZELNORM [Suspect]
     Dosage: 6 MG, BID

REACTIONS (2)
  - DEHYDRATION [None]
  - DIARRHOEA [None]
